FAERS Safety Report 4838922-X (Version None)
Quarter: 2005Q4

REPORT INFORMATION
  Report Type: 
  Country: None (occurrence: None)
  Receive Date: 20051129
  Receipt Date: 20051014
  Transmission Date: 20060501
  Serious: No
  Sender: FDA-Public Use
  Company Number: US-GLAXOSMITHKLINE-A0578304A

PATIENT
  Age: 42 Year
  Sex: Male
  Weight: 74.5 kg

DRUGS (12)
  1. EPZICOM [Suspect]
     Indication: HIV INFECTION
     Dosage: 1TAB PER DAY
     Route: 048
     Dates: start: 20050606, end: 20050623
  2. ABACAVIR SULFATE [Suspect]
     Route: 048
  3. ASTELIN [Concomitant]
     Dosage: 1SPR TWICE PER DAY
     Route: 045
     Dates: start: 20020401
  4. PIROXICAM [Concomitant]
     Dosage: 20MG PER DAY
     Route: 048
     Dates: start: 20020501, end: 20051001
  5. ZERIT [Concomitant]
     Indication: HIV INFECTION
     Dosage: 40MG TWICE PER DAY
     Route: 048
     Dates: start: 20050707
  6. VIREAD [Concomitant]
     Indication: HIV INFECTION
     Dosage: 300MG PER DAY
     Route: 048
     Dates: start: 20050707
  7. REYATAZ [Concomitant]
     Indication: HIV INFECTION
     Dosage: 300MG PER DAY
     Route: 048
     Dates: start: 20050707
  8. NORVIR [Concomitant]
     Indication: HIV INFECTION
     Dosage: 100MG PER DAY
     Route: 048
     Dates: start: 20050707
  9. BUSPAR [Concomitant]
     Indication: ANXIETY
     Dosage: 7.5MG TWICE PER DAY
     Route: 048
     Dates: start: 20020501
  10. FLEXERIL [Concomitant]
     Indication: FATIGUE
     Route: 048
     Dates: start: 20050901
  11. RESTORIL [Concomitant]
     Indication: INSOMNIA
     Dosage: 30MG AT NIGHT
     Route: 048
     Dates: start: 20050901
  12. PAMELOR [Concomitant]
     Indication: FATIGUE
     Dosage: 50MG PER DAY
     Route: 048
     Dates: start: 20040901, end: 20050824

REACTIONS (3)
  - HYPERSENSITIVITY [None]
  - PYREXIA [None]
  - RASH [None]
